FAERS Safety Report 6525845-3 (Version None)
Quarter: 2010Q1

REPORT INFORMATION
  Report Type: 
  Country: None (occurrence: None)
  Receive Date: 20100104
  Receipt Date: 20091224
  Transmission Date: 20100710
  Serious: Yes (Death)
  Sender: FDA-Public Use
  Company Number: B0620165A

PATIENT
  Sex: Female

DRUGS (5)
  1. ZOPHREN IV [Suspect]
     Indication: PREMEDICATION
     Route: 042
     Dates: start: 20091009, end: 20091009
  2. OXALIPLATINE [Suspect]
     Dosage: 105MG SINGLE DOSE
     Route: 042
     Dates: start: 20091009, end: 20091009
  3. ELVORINE [Suspect]
     Dosage: 330MG SINGLE DOSE
     Route: 042
     Dates: start: 20091009, end: 20091009
  4. SOLU-MEDROL [Suspect]
     Indication: PREMEDICATION
     Route: 042
     Dates: start: 20091009, end: 20091009
  5. FLUOROURACIL [Concomitant]
     Dosage: 2640MG PER DAY
     Route: 042
     Dates: start: 20091009, end: 20091009

REACTIONS (26)
  - ACUTE PULMONARY OEDEMA [None]
  - AGITATION [None]
  - ANURIA [None]
  - ATRIAL PRESSURE INCREASED [None]
  - BACK PAIN [None]
  - CARDIO-RESPIRATORY ARREST [None]
  - CARDIOGENIC SHOCK [None]
  - CARDIOVASCULAR DISORDER [None]
  - COOMBS POSITIVE HAEMOLYTIC ANAEMIA [None]
  - DISORIENTATION [None]
  - DISSEMINATED INTRAVASCULAR COAGULATION [None]
  - EJECTION FRACTION DECREASED [None]
  - HAEMOGLOBINURIA [None]
  - HAEMOLYSIS [None]
  - HYPOALBUMINAEMIA [None]
  - HYPOTHERMIA [None]
  - HYPOVENTILATION [None]
  - LEFT VENTRICULAR DYSFUNCTION [None]
  - METABOLIC ACIDOSIS [None]
  - MULTI-ORGAN FAILURE [None]
  - NEUROLOGICAL DECOMPENSATION [None]
  - PULMONARY ARTERIAL HYPERTENSION [None]
  - RESPIRATORY DISTRESS [None]
  - RESPIRATORY FAILURE [None]
  - SHOCK [None]
  - VOMITING [None]
